FAERS Safety Report 8888730 (Version 1)
Quarter: 2012Q4

REPORT INFORMATION
  Report Type: 
  Country: US (occurrence: US)
  Receive Date: 20121106
  Receipt Date: 20121106
  Transmission Date: 20130627
  Serious: No
  Sender: FDA-Public Use
  Company Number: US-PFIZER INC-2012274440

PATIENT
  Sex: Female

DRUGS (1)
  1. XANAX [Suspect]
     Dosage: UNK

REACTIONS (9)
  - Withdrawal syndrome [Unknown]
  - Dyskinesia [Unknown]
  - Vomiting [Unknown]
  - Diarrhoea [Unknown]
  - Feeling cold [Unknown]
  - Hot flush [Unknown]
  - Confusional state [Unknown]
  - Dehydration [Unknown]
  - Depressed mood [Unknown]
